FAERS Safety Report 5414982-2 (Version None)
Quarter: 2007Q3

REPORT INFORMATION
  Report Type: 
  Country: None (occurrence: None)
  Receive Date: 20070815
  Receipt Date: 20070806
  Transmission Date: 20080115
  Serious: Yes (Death, Life-Threatening, Hospitalization, Disabling)
  Sender: FDA-Public Use
  Company Number: CH-BRISTOL-MYERS SQUIBB COMPANY-13795778

PATIENT
  Age: 71 Year
  Sex: Male

DRUGS (7)
  1. ERBITUX [Suspect]
     Indication: LARYNGEAL CANCER
     Route: 041
     Dates: start: 20070507
  2. RADIOTHERAPY [Concomitant]
     Indication: LARYNGEAL CANCER
  3. MARCUMAR [Concomitant]
     Indication: ANTICOAGULANT THERAPY
     Dates: start: 20070512
  4. PARACETAMOL [Concomitant]
     Dates: start: 20070507, end: 20070507
  5. NIFEDIPINE [Concomitant]
     Dates: end: 20070517
  6. SIMVASTATIN [Concomitant]
     Dates: end: 20070517
  7. AMIODARONE HCL [Concomitant]
     Dates: end: 20070517

REACTIONS (4)
  - ACUTE RESPIRATORY DISTRESS SYNDROME [None]
  - DEATH [None]
  - ESCHERICHIA SEPSIS [None]
  - PERIPHERAL ARTERIAL OCCLUSIVE DISEASE [None]
